FAERS Safety Report 8030776-6 (Version None)
Quarter: 2012Q1

REPORT INFORMATION
  Report Type: 
  Country: None (occurrence: None)
  Receive Date: 20120109
  Receipt Date: 20120105
  Transmission Date: 20120608
  Serious: Yes (Other)
  Sender: FDA-Public Use
  Company Number: PHHY2012CR000667

PATIENT
  Age: 11 Year
  Sex: Male

DRUGS (2)
  1. EXJADE [Suspect]
     Indication: APLASTIC ANAEMIA
     Dosage: 500 MG, DAILY
     Route: 048
  2. CYCLOSPORINE [Concomitant]

REACTIONS (3)
  - ASYMPTOMATIC VIRAL HEPATITIS [None]
  - HEPATOMEGALY [None]
  - HEPATITIS B [None]
